FAERS Safety Report 8517848-4 (Version None)
Quarter: 2012Q3

REPORT INFORMATION
  Report Type: 
  Country: None (occurrence: None)
  Receive Date: 20120712
  Receipt Date: 20120712
  Transmission Date: 20120928
  Serious: Yes (Life-Threatening)
  Sender: FDA-Public Use
  Company Number: None

PATIENT
  Age: 38 Year
  Sex: Male
  Weight: 105.3 kg

DRUGS (18)
  1. CATAPRES [Suspect]
     Indication: HYPERTENSION
     Dosage: 0.1 MG QHS PO
     Route: 048
     Dates: start: 20120629, end: 20120709
  2. ICY HOT [Concomitant]
  3. ALBUTEROL NEBULIZER SOLN [Concomitant]
  4. CHOLECALCIFEROL [Concomitant]
  5. FENTANYL [Concomitant]
  6. PAROXETINE [Concomitant]
  7. ACETAMINOPHEN [Concomitant]
  8. SIMETHICONE [Concomitant]
  9. TRAZODONE HYDROCHLORIDE [Concomitant]
  10. DIAZEPAM RECTAL GEL [Concomitant]
  11. MULTI-VITAMIN [Concomitant]
  12. ONDANSETRON [Concomitant]
  13. ZOLPIDEM [Concomitant]
  14. MIDODRINE HYDROCHLORIDE [Concomitant]
  15. MAGNESIUM HYDROXIDE/ALUMINUM HYDROXIDE/SIMETHICONE [Concomitant]
  16. MELATONIN [Concomitant]
  17. MICONAZOLE [Concomitant]
  18. QUETIAPINE [Concomitant]

REACTIONS (3)
  - RASH MACULO-PAPULAR [None]
  - PRURITUS [None]
  - DRUG INEFFECTIVE [None]
